FAERS Safety Report 10741553 (Version 1)
Quarter: 2015Q1

REPORT INFORMATION
  Report Type: Spontaneous
  Country: US (occurrence: None)
  Receive Date: 20150123
  Receipt Date: 20150123
  Transmission Date: 20150721
  Serious: Yes (Hospitalization)
  Sender: FDA-Public Use
  Company Number: 2015FE00121

PATIENT
  Age: 22 Year
  Sex: Male

DRUGS (1)
  1. UNKNOWN (DESMOPRESSIN) UNKNOWN [Suspect]
     Active Substance: DESMOPRESSIN
     Indication: VON WILLEBRAND^S DISEASE

REACTIONS (2)
  - Hyponatraemic encephalopathy [None]
  - Hyponatraemia [None]
